FAERS Safety Report 10016770 (Version 1)
Quarter: 2014Q1

REPORT INFORMATION
  Report Type: Report from Study
  Country: BR (occurrence: BR)
  Receive Date: 20140318
  Receipt Date: 20140318
  Transmission Date: 20141002
  Serious: Yes (Hospitalization, Other)
  Sender: FDA-Public Use
  Company Number: PHHY2014BR031661

PATIENT
  Sex: Male

DRUGS (4)
  1. STALEVO [Suspect]
     Indication: GAIT DISTURBANCE
     Dosage: UNK UKN, UNK
  2. STALEVO [Suspect]
     Indication: MOVEMENT DISORDER
  3. STALEVO [Suspect]
     Indication: TREMOR
  4. DONEPEZIL [Suspect]
     Dosage: 5 MG, UNK

REACTIONS (4)
  - Gait disturbance [Unknown]
  - Blood pressure decreased [Unknown]
  - Memory impairment [Unknown]
  - Confusional state [Unknown]
